FAERS Safety Report 7810957-4 (Version None)
Quarter: 2011Q4

REPORT INFORMATION
  Report Type: 
  Country: None (occurrence: None)
  Receive Date: 20111013
  Receipt Date: 20111010
  Transmission Date: 20120403
  Serious: No
  Sender: FDA-Public Use
  Company Number: US-PFIZER INC-2011194079

PATIENT
  Sex: Male

DRUGS (3)
  1. LYRICA [Suspect]
     Dosage: 100 MG, UNK
  2. LYRICA [Suspect]
     Dosage: 50MG, UNK
  3. LYRICA [Suspect]
     Dosage: 75 MG, UNK

REACTIONS (9)
  - ABDOMINAL PAIN [None]
  - CHILLS [None]
  - DYSGEUSIA [None]
  - VERTIGO [None]
  - FEELING ABNORMAL [None]
  - DYSPHAGIA [None]
  - FEELING HOT [None]
  - WEIGHT INCREASED [None]
  - LIP INJURY [None]
